FAERS Safety Report 6173440-0 (Version None)
Quarter: 2009Q2

REPORT INFORMATION
  Report Type: 
  Country: None (occurrence: None)
  Receive Date: 20090429
  Receipt Date: 20090429
  Transmission Date: 20091009
  Serious: No
  Sender: FDA-Public Use
  Company Number: None

PATIENT
  Sex: Female
  Weight: 89.8122 kg

DRUGS (4)
  1. TRAMADOL HCL [Suspect]
     Indication: PAIN
     Dosage: 50MG CAN'T USE COUNTERFEIT
  2. OXYCODONE AND ACETAMINOPHEN [Suspect]
     Indication: PAIN
     Dosage: 5MG - 325MG  CAN'T USE COUNTERFEIT
  3. DOXYCYCLINE [Concomitant]
  4. AMOXICYCLINE [Concomitant]

REACTIONS (2)
  - PRODUCT COUNTERFEIT [None]
  - PRODUCT QUALITY ISSUE [None]
